FAERS Safety Report 11940347 (Version 2)
Quarter: 2016Q1

REPORT INFORMATION
  Report Type: Spontaneous
  Country: US (occurrence: US)
  Receive Date: 20160122
  Receipt Date: 20160224
  Transmission Date: 20160526
  Serious: Yes (Other)
  Sender: FDA-Public Use
  Company Number: US-PFIZER INC-2016035403

PATIENT
  Age: 72 Year
  Sex: Female

DRUGS (6)
  1. SIMVASTATIN. [Concomitant]
     Active Substance: SIMVASTATIN
     Dosage: UNK
     Dates: start: 2000, end: 201601
  2. EFFEXOR XR [Suspect]
     Active Substance: VENLAFAXINE HYDROCHLORIDE
     Indication: DEPRESSION
     Dosage: 75 MG, 1X/DAY
  3. EFFEXOR XR [Suspect]
     Active Substance: VENLAFAXINE HYDROCHLORIDE
     Indication: ANXIETY
     Dosage: 150 MG, 1X/DAY
     Dates: start: 201405
  4. EFFEXOR XR [Suspect]
     Active Substance: VENLAFAXINE HYDROCHLORIDE
     Dosage: 37.5 MG, ALTERNATE DAY
     Dates: end: 201601
  5. LEVOTHYROXINE. [Concomitant]
     Active Substance: LEVOTHYROXINE
     Dosage: UNK
     Dates: start: 2000
  6. ASPIRIN. [Concomitant]
     Active Substance: ASPIRIN
     Dosage: 85 MG, UNK
     Dates: start: 2000

REACTIONS (22)
  - Pruritus [Unknown]
  - Diarrhoea [Unknown]
  - Arthritis [Recovered/Resolved]
  - Drug ineffective [Recovering/Resolving]
  - Insomnia [Recovered/Resolved]
  - Paraesthesia [Unknown]
  - Headache [Unknown]
  - Chills [Unknown]
  - Nervous system disorder [Unknown]
  - Tremor [Unknown]
  - Pelvic pain [Recovering/Resolving]
  - Drug withdrawal syndrome [Unknown]
  - Nausea [Unknown]
  - Deafness [Not Recovered/Not Resolved]
  - Arthralgia [Recovering/Resolving]
  - Vomiting [Unknown]
  - Pyrexia [Unknown]
  - Tinnitus [Unknown]
  - Feeling abnormal [Unknown]
  - Apathy [Unknown]
  - Pain [Unknown]
  - Crying [Unknown]
